FAERS Safety Report 9433509 (Version 1)
Quarter: 2013Q3

REPORT INFORMATION
  Report Type: Spontaneous
  Country: JP (occurrence: JP)
  Receive Date: 20130731
  Receipt Date: 20130731
  Transmission Date: 20140515
  Serious: Yes (Hospitalization, Other)
  Sender: FDA-Public Use
  Company Number: JP-ASTRAZENECA-2013SE50419

PATIENT
  Age: 76 Year
  Sex: Female
  Weight: 47 kg

DRUGS (10)
  1. CRESTOR [Suspect]
     Indication: DYSLIPIDAEMIA
     Route: 048
     Dates: start: 20130523, end: 20130530
  2. WARFARIN [Concomitant]
     Indication: CEREBRAL INFARCTION
     Route: 048
     Dates: start: 20130316
  3. TOSPERAL [Concomitant]
     Indication: DIZZINESS
     Route: 048
     Dates: start: 20130425
  4. CONIEL [Concomitant]
     Indication: CHEST DISCOMFORT
     Route: 048
     Dates: start: 20130425
  5. ARICEPT [Concomitant]
     Indication: DEMENTIA ALZHEIMER^S TYPE
     Route: 048
     Dates: start: 20130326
  6. MEMARY [Concomitant]
     Indication: DEMENTIA ALZHEIMER^S TYPE
     Route: 048
     Dates: start: 20130418
  7. BIOFERMIN [Concomitant]
     Indication: DIARRHOEA
     Route: 048
     Dates: start: 20130502
  8. LACTYME [Concomitant]
     Indication: DIARRHOEA
     Route: 048
     Dates: start: 20130502
  9. LEXAPRO [Concomitant]
     Indication: INSOMNIA
     Route: 048
     Dates: start: 20130522, end: 20130524
  10. ROZEREM [Concomitant]
     Indication: INSOMNIA
     Route: 048
     Dates: start: 20130522, end: 20130524

REACTIONS (3)
  - Malaise [Recovered/Resolved]
  - Pyrexia [Recovered/Resolved]
  - Generalised erythema [Recovered/Resolved]
